FAERS Safety Report 9601876 (Version 2)
Quarter: 2014Q3

REPORT INFORMATION
  Report Type: Spontaneous
  Country: CA (occurrence: CA)
  Receive Date: 20131007
  Receipt Date: 20140926
  Transmission Date: 20150326
  Serious: Yes (Other)
  Sender: FDA-Public Use
  Company Number: CA-AMGEN-CANSP2013069088

PATIENT
  Age: 72 Year
  Sex: Female

DRUGS (1)
  1. PROLIA [Suspect]
     Active Substance: DENOSUMAB
     Indication: OSTEOPOROSIS POSTMENOPAUSAL
     Dosage: 60 MG, Q6MO
     Route: 058
     Dates: start: 20120106

REACTIONS (10)
  - Ear congestion [Unknown]
  - Eczema [Recovering/Resolving]
  - Loose tooth [Unknown]
  - Bone loss [Unknown]
  - Eye pruritus [Unknown]
  - Weight decreased [Unknown]
  - Pain in extremity [Not Recovered/Not Resolved]
  - Groin pain [Not Recovered/Not Resolved]
  - Muscle spasms [Unknown]
  - Rash macular [Unknown]

NARRATIVE: CASE EVENT DATE: 2012
